FAERS Safety Report 4395371-9 (Version None)
Quarter: 2004Q3

REPORT INFORMATION
  Report Type: 
  Country: None (occurrence: None)
  Receive Date: 20040712
  Receipt Date: 20040712
  Transmission Date: 20050211
  Serious: Yes (Hospitalization)
  Sender: FDA-Public Use
  Company Number: None

PATIENT
  Sex: Female
  Weight: 72.5755 kg

DRUGS (1)
  1. DEPAKOTE [Suspect]
     Indication: CONVULSION
     Dosage: 500 MG TWICE A DA IV
     Route: 042
     Dates: start: 20040501, end: 20040710

REACTIONS (5)
  - AGGRESSION [None]
  - ALOPECIA [None]
  - HEPATIC ENCEPHALOPATHY [None]
  - MEDICATION ERROR [None]
  - OVERDOSE [None]
